FAERS Safety Report 8349379-9 (Version None)
Quarter: 2012Q2

REPORT INFORMATION
  Report Type: 
  Country: None (occurrence: None)
  Receive Date: 20120508
  Receipt Date: 20120424
  Transmission Date: 20120825
  Serious: Yes (Hospitalization)
  Sender: FDA-Public Use
  Company Number: AUR-APL-2012-01956

PATIENT
  Age: 35 Year
  Sex: Female
  Weight: 72.8 kg

DRUGS (9)
  1. VERAPAMIL [Concomitant]
  2. ESCITALOPRAM [Concomitant]
  3. TRAMADOL HYDROCHLORIDE [Concomitant]
  4. IBUPROFEN [Concomitant]
  5. RIBAVIRIN [Suspect]
     Indication: HEPATITIS C
     Dosage: 800 MG (400 MG, 2 IN 1 D), ORAL
     Route: 048
     Dates: start: 20111004, end: 20120301
  6. PEGASYS [Suspect]
     Indication: HEPATITIS C
     Dosage: 25.7143 MCG (180 MCG, 1 IN 1 WK), SUBCUTANEOUS
     Route: 058
     Dates: start: 20111004, end: 20120301
  7. METOCLOPRAMIDE [Concomitant]
  8. DIAZEPAM [Concomitant]
  9. ZOLMITRIPTAN [Concomitant]

REACTIONS (6)
  - CONFUSIONAL STATE [None]
  - ANXIETY [None]
  - MENTAL DISORDER [None]
  - PSYCHOTIC DISORDER [None]
  - PARANOIA [None]
  - DISORIENTATION [None]
